FAERS Safety Report 23163258 (Version 1)
Quarter: 2023Q4

REPORT INFORMATION
  Report Type: Spontaneous
  Country: JP (occurrence: JP)
  Receive Date: 20231109
  Receipt Date: 20231109
  Transmission Date: 20240110
  Serious: Yes (Hospitalization, Other)
  Sender: FDA-Public Use
  Company Number: JP-BAXTER-2023BAX034115

PATIENT
  Age: 60 Year
  Sex: Male
  Weight: 63.4 kg

DRUGS (6)
  1. REGUNEAL LCA [Suspect]
     Active Substance: CALCIUM CHLORIDE\DEXTROSE MONOHYDRATE\HYDROCHLORIC ACID\MAGNESIUM CHLORIDE\SODIUM BICARBONATE\SODIUM
     Dosage: 2000ML?3
     Route: 033
     Dates: start: 20220402
  2. EXTRANEAL [Suspect]
     Active Substance: CALCIUM CHLORIDE\ICODEXTRIN\MAGNESIUM CHLORIDE\SODIUM CHLORIDE\SODIUM LACTATE
     Dosage: 2000ML?1
     Route: 033
     Dates: start: 20220402
  3. AMLODIPINE [Concomitant]
     Active Substance: AMLODIPINE BESYLATE
     Dosage: 2 TABLETS/ONCE DAILY
     Route: 048
     Dates: start: 20220402
  4. ALFACALCIDOL [Concomitant]
     Active Substance: ALFACALCIDOL
     Dosage: 1 CAPUSLE/ONCE DAILY
     Route: 048
     Dates: start: 20220402
  5. LANTHANUM CARBONATE [Concomitant]
     Active Substance: LANTHANUM CARBONATE
     Dosage: 3 TABLETS/3 TIMES DAILY
     Route: 048
     Dates: start: 20220402
  6. FERRIC CITRATE ANHYDROUS [Concomitant]
     Active Substance: FERRIC CITRATE ANHYDROUS
     Dosage: 1 TABLET/3 TIMES DAILY
     Route: 048
     Dates: start: 20220402

REACTIONS (5)
  - Peritonitis bacterial [Recovered/Resolved]
  - Peritoneal cloudy effluent [Unknown]
  - Pyrexia [Unknown]
  - Peritoneal dialysis complication [Unknown]
  - Device issue [Unknown]

NARRATIVE: CASE EVENT DATE: 20231020
